FAERS Safety Report 17026039 (Version 1)
Quarter: 2019Q4

REPORT INFORMATION
  Report Type: Report from Study
  Country: CN (occurrence: CN)
  Receive Date: 20191113
  Receipt Date: 20191113
  Transmission Date: 20200122
  Serious: Yes (Other)
  Sender: FDA-Public Use
  Company Number: CN-PFIZER INC-2019484028

PATIENT
  Age: 61 Year
  Sex: Male

DRUGS (16)
  1. VANCOMYCIN [Suspect]
     Active Substance: VANCOMYCIN
     Indication: ANTIBIOTIC THERAPY
     Dosage: UNK
     Dates: start: 2018
  2. CEFOPERAZONE SODIUM/SULBACTAM SODIUM [Suspect]
     Active Substance: CEFOPERAZONE SODIUM\SULBACTAM SODIUM
     Indication: ANTIBIOTIC THERAPY
     Dosage: UNK
     Dates: start: 2018
  3. CLARITHROMYCIN. [Suspect]
     Active Substance: CLARITHROMYCIN
     Indication: MYCOBACTERIUM AVIUM COMPLEX INFECTION
  4. METHYLPREDNISOLONE. [Concomitant]
     Active Substance: METHYLPREDNISOLONE
     Indication: IMMUNOSUPPRESSANT DRUG THERAPY
     Dosage: UNK
     Dates: start: 2018
  5. ETHAMBUTOL [Suspect]
     Active Substance: ETHAMBUTOL HYDROCHLORIDE
     Indication: MYCOBACTERIUM AVIUM COMPLEX INFECTION
  6. TACROLIMUS. [Concomitant]
     Active Substance: TACROLIMUS
     Indication: IMMUNOSUPPRESSANT DRUG THERAPY
     Dosage: UNK
     Dates: start: 2018, end: 2018
  7. TACROLIMUS. [Concomitant]
     Active Substance: TACROLIMUS
     Dosage: UNK (REDUCED MAINTAIN THE FK506 LEVEL AT 7 TO 8 NG/ML)
     Dates: start: 2018
  8. VORICONAZOLE. [Suspect]
     Active Substance: VORICONAZOLE
     Indication: MYCOBACTERIUM AVIUM COMPLEX INFECTION
  9. AMPHOTERICIN B. [Suspect]
     Active Substance: AMPHOTERICIN B
     Indication: ANTIBIOTIC THERAPY
     Dosage: UNK (INHALED)
     Route: 055
     Dates: start: 2018
  10. MMF [Concomitant]
     Active Substance: MYCOPHENOLATE MOFETIL
     Indication: IMMUNOSUPPRESSANT DRUG THERAPY
     Dosage: UNK
     Dates: start: 2018, end: 2018
  11. CLARITHROMYCIN. [Suspect]
     Active Substance: CLARITHROMYCIN
     Indication: ASPERGILLUS INFECTION
     Dosage: UNK
  12. CASPOFUNGIN [Suspect]
     Active Substance: CASPOFUNGIN
     Indication: ANTIBIOTIC THERAPY
     Dosage: UNK
     Dates: start: 2018
  13. VORICONAZOLE. [Suspect]
     Active Substance: VORICONAZOLE
     Indication: ASPERGILLUS INFECTION
     Dosage: UNK (3 MO BEFORE TRANSPLANTATION)
     Route: 048
  14. ETHAMBUTOL [Suspect]
     Active Substance: ETHAMBUTOL HYDROCHLORIDE
     Indication: ASPERGILLUS INFECTION
     Dosage: UNK
  15. GANCICLOVIR. [Suspect]
     Active Substance: GANCICLOVIR
     Indication: ANTIBIOTIC THERAPY
     Dosage: UNK
     Dates: start: 2018
  16. SULFADIAZINE/TRIMETHOPRIM [Suspect]
     Active Substance: SULFAMETHOXAZOLE\TRIMETHOPRIM
     Indication: ANTIBIOTIC THERAPY
     Dosage: UNK
     Dates: start: 2018

REACTIONS (2)
  - Scopulariopsis infection [Unknown]
  - Pathogen resistance [Unknown]
